FAERS Safety Report 4979618-3 (Version None)
Quarter: 2006Q2

REPORT INFORMATION
  Report Type: 
  Country: None (occurrence: None)
  Receive Date: 20060418
  Receipt Date: 20060403
  Transmission Date: 20061013
  Serious: Yes (Hospitalization, Other)
  Sender: FDA-Public Use
  Company Number: FR200601004391

PATIENT
  Age: 83 Year
  Sex: Female

DRUGS (6)
  1. FORTEO [Suspect]
     Indication: OSTEOPOROSIS
     Dosage: 20 UG, DAILY (1/D), SUBCUTANEOUS
     Route: 058
     Dates: start: 20051003, end: 20060109
  2. FORTEO [Suspect]
     Indication: OSTEOPOROSIS
     Dosage: 20 UG, DAILY (1/D), SUBCUTANEOUS
     Route: 058
     Dates: start: 20060321
  3. FORTEO PEN (250MCG/ML) [Concomitant]
  4. PROPRANOLOL [Concomitant]
  5. DIOSMINIL (DIOSMIN) [Concomitant]
  6. OROCAL (CALCIUM CARBONATE) [Concomitant]

REACTIONS (11)
  - CYTOLYTIC HEPATITIS [None]
  - DILATATION ATRIAL [None]
  - EPISTAXIS [None]
  - FALL [None]
  - HAEMOGLOBIN DECREASED [None]
  - HEPATOCELLULAR DAMAGE [None]
  - HYPERTENSION [None]
  - RIB FRACTURE [None]
  - STERNAL FRACTURE [None]
  - SUPRAVENTRICULAR EXTRASYSTOLES [None]
  - SYNCOPE VASOVAGAL [None]
